FAERS Safety Report 13320310 (Version 2)
Quarter: 2017Q2

REPORT INFORMATION
  Report Type: Spontaneous
  Country: DE (occurrence: DE)
  Receive Date: 20170309
  Receipt Date: 20170516
  Transmission Date: 20170830
  Serious: Yes (Hospitalization, Other)
  Sender: FDA-Public Use
  Company Number: DE-UCBSA-2017008628

PATIENT
  Sex: Male

DRUGS (3)
  1. XUSAL [Suspect]
     Active Substance: LEVOCETIRIZINE DIHYDROCHLORIDE
     Indication: OFF LABEL USE
  2. XUSAL [Suspect]
     Active Substance: LEVOCETIRIZINE DIHYDROCHLORIDE
     Indication: DERMATITIS
     Dosage: 5 MG, 4X/DAY (QID)
     Route: 048
  3. DICLOFENAC [Concomitant]
     Active Substance: DICLOFENAC
     Indication: ARTHRALGIA
     Dosage: UNK

REACTIONS (5)
  - Erythema multiforme [Unknown]
  - Hypotonia [Unknown]
  - Renal failure [Unknown]
  - Off label use [Unknown]
  - Overdose [Unknown]
